FAERS Safety Report 5885440-6 (Version None)
Quarter: 2008Q3

REPORT INFORMATION
  Report Type: 
  Country: None (occurrence: None)
  Receive Date: 20080915
  Receipt Date: 20080915
  Transmission Date: 20090109
  Serious: Yes (Hospitalization)
  Sender: FDA-Public Use
  Company Number: None

PATIENT
  Sex: Female
  Weight: 54.4316 kg

DRUGS (3)
  1. FONDAPARINUX 7.5 MG/0.6ML GLAXOSMITHKLINE [Suspect]
     Indication: DEEP VEIN THROMBOSIS
     Dosage: 7.5 MG Q DAY SQ
     Route: 058
     Dates: start: 20080520, end: 20080913
  2. ASPIRIN [Concomitant]
  3. HYDROCODONE BITARTRATE + ACETAMINOPHEN [Concomitant]

REACTIONS (1)
  - STEVENS-JOHNSON SYNDROME [None]
